FAERS Safety Report 7928767-6 (Version None)
Quarter: 2011Q4

REPORT INFORMATION
  Report Type: 
  Country: None (occurrence: None)
  Receive Date: 20111118
  Receipt Date: 20111109
  Transmission Date: 20120403
  Serious: Yes (Other)
  Sender: FDA-Public Use
  Company Number: US-US-EMD SERONO, INC.-7039690

PATIENT
  Sex: Female
  Weight: 91 kg

DRUGS (2)
  1. REBIF [Suspect]
     Dates: start: 20110201
  2. REBIF [Suspect]
     Indication: MULTIPLE SCLEROSIS
     Route: 058
     Dates: start: 20101101, end: 20110121

REACTIONS (1)
  - CHOLELITHIASIS [None]
